FAERS Safety Report 8522262-1 (Version None)
Quarter: 2012Q3

REPORT INFORMATION
  Report Type: 
  Country: None (occurrence: None)
  Receive Date: 20120719
  Receipt Date: 20120712
  Transmission Date: 20120928
  Serious: No
  Sender: FDA-Public Use
  Company Number: US-B.I. PHARMACEUTICALS,INC./RIDGEFIELD-2012-BP-15684BP

PATIENT
  Sex: Female

DRUGS (1)
  1. ZANTAC [Suspect]
     Indication: OESOPHAGEAL DISCOMFORT
     Dosage: 150 MG
     Route: 048
     Dates: start: 20120711, end: 20120711

REACTIONS (2)
  - HYPOAESTHESIA ORAL [None]
  - HYPOAESTHESIA [None]
